FAERS Safety Report 7309295-8 (Version None)
Quarter: 2011Q1

REPORT INFORMATION
  Report Type: 
  Country: None (occurrence: None)
  Receive Date: 20110223
  Receipt Date: 20100730
  Transmission Date: 20110831
  Serious: No
  Sender: FDA-Public Use
  Company Number: US-BAUSCH-2010BL004193

PATIENT
  Age: 39 Year
  Sex: Female
  Weight: 74 kg

DRUGS (1)
  1. BACITRACIN TOPICAL OINTMENT [Suspect]
     Indication: POSTOPERATIVE CARE
     Route: 047
     Dates: start: 20100728, end: 20100728

REACTIONS (2)
  - BLISTER [None]
  - EYELID OEDEMA [None]
